FAERS Safety Report 11844215 (Version 2)
Quarter: 2016Q1

REPORT INFORMATION
  Report Type: Spontaneous
  Country: IT (occurrence: IT)
  Receive Date: 20151217
  Receipt Date: 20160301
  Transmission Date: 20160526
  Serious: Yes (Hospitalization)
  Sender: FDA-Public Use
  Company Number: IT-009507513-1512ITA004301

PATIENT
  Age: 63 Year
  Sex: Male

DRUGS (8)
  1. BISOPROLOL FUMARATE. [Concomitant]
     Active Substance: BISOPROLOL FUMARATE
     Dosage: UNK
  2. HUMALOG [Concomitant]
     Active Substance: INSULIN LISPRO
     Dosage: UNK
  3. PANTORC [Concomitant]
     Active Substance: PANTOPRAZOLE SODIUM
     Dosage: UNK
  4. EPREX [Concomitant]
     Active Substance: ERYTHROPOIETIN
     Dosage: UNK
  5. OLMESARTAN MEDOXOMIL. [Concomitant]
     Active Substance: OLMESARTAN MEDOXOMIL
     Dosage: UNK
     Route: 048
  6. INVANZ [Suspect]
     Active Substance: ERTAPENEM SODIUM
     Indication: OSTEOMYELITIS BACTERIAL
     Dosage: 500 MG IN 100 ML OF SALINE SOLUTION DAILY
     Route: 042
     Dates: start: 20151014, end: 20151030
  7. LEVEMIR [Concomitant]
     Active Substance: INSULIN DETEMIR
     Dosage: UNK
  8. LASIX [Concomitant]
     Active Substance: FUROSEMIDE
     Dosage: UNK

REACTIONS (4)
  - Hallucination, visual [Recovered/Resolved]
  - Confusional state [Recovered/Resolved]
  - Aggression [Recovered/Resolved]
  - Disorientation [Recovered/Resolved]

NARRATIVE: CASE EVENT DATE: 20151029
